FAERS Safety Report 12532116 (Version 1)
Quarter: 2016Q3

REPORT INFORMATION
  Report Type: Spontaneous
  Country: AT (occurrence: AT)
  Receive Date: 20160706
  Receipt Date: 20160706
  Transmission Date: 20161109
  Serious: Yes (Hospitalization)
  Sender: FDA-Public Use
  Company Number: AT-WATSON-2016-14187

PATIENT
  Age: 55 Year
  Sex: Female

DRUGS (5)
  1. LEVOFLOXACIN (UNKNOWN) [Suspect]
     Active Substance: LEVOFLOXACIN
     Indication: HELICOBACTER GASTRITIS
     Dosage: UNK, BID
     Route: 065
     Dates: start: 20160530, end: 20160603
  2. ENBREL [Suspect]
     Active Substance: ETANERCEPT
     Indication: PSORIATIC ARTHROPATHY
     Dosage: 50 MG, UNK
     Route: 065
     Dates: start: 201411
  3. ENBREL [Suspect]
     Active Substance: ETANERCEPT
     Dosage: UNK
     Route: 065
     Dates: start: 20160604
  4. AMOXICILLIN. [Suspect]
     Active Substance: AMOXICILLIN
     Indication: HELICOBACTER GASTRITIS
     Dosage: 1000 MG, BID
     Route: 065
     Dates: start: 20160530, end: 20160603
  5. AEROCEF                            /00821801/ [Suspect]
     Active Substance: CEFIXIME
     Indication: HELICOBACTER GASTRITIS
     Dosage: UNK, BID
     Route: 065
     Dates: start: 20160530, end: 20160603

REACTIONS (1)
  - Hepatitis toxic [Unknown]

NARRATIVE: CASE EVENT DATE: 201606
